FAERS Safety Report 7960939-7 (Version None)
Quarter: 2011Q4

REPORT INFORMATION
  Report Type: 
  Country: None (occurrence: None)
  Receive Date: 20111121
  Receipt Date: 20111014
  Transmission Date: 20120403
  Serious: No
  Sender: FDA-Public Use
  Company Number: 1000024691

PATIENT
  Age: 55 Year
  Sex: Female

DRUGS (1)
  1. VIIBRYD [Suspect]
     Indication: DEPRESSION
     Dosage: 10 MG (10 MG, 1 IN 1 D), ORAL
     Route: 048
     Dates: start: 20111007, end: 20111010

REACTIONS (4)
  - DEHYDRATION [None]
  - BLOOD PRESSURE DECREASED [None]
  - DIARRHOEA [None]
  - BLOOD PRESSURE [None]
